FAERS Safety Report 4718800-7 (Version None)
Quarter: 2005Q3

REPORT INFORMATION
  Report Type: 
  Country: None (occurrence: None)
  Receive Date: 20050719
  Receipt Date: 20050708
  Transmission Date: 20060218
  Serious: Yes (Hospitalization)
  Sender: FDA-Public Use
  Company Number: 2005050601548

PATIENT
  Age: 61 Year
  Sex: Female

DRUGS (4)
  1. MONISTAT 7 [Suspect]
     Indication: FUNGAL INFECTION
     Dosage: 100 MG, 7, VAGINAL
     Route: 067
     Dates: start: 20050414, end: 20050420
  2. PREMARIN [Concomitant]
  3. COUMADIN [Concomitant]
  4. CALCIUM GLUCONATE [Concomitant]

REACTIONS (9)
  - ACTIVATED PARTIAL THROMBOPLASTIN TIME PROLONGED [None]
  - BLOOD BILIRUBIN INCREASED [None]
  - COAGULOPATHY [None]
  - ECCHYMOSIS [None]
  - INTERNATIONAL NORMALISED RATIO INCREASED [None]
  - LIMB INJURY [None]
  - OEDEMA PERIPHERAL [None]
  - PAIN [None]
  - PROTHROMBIN TIME PROLONGED [None]
